FAERS Safety Report 8538761-2 (Version None)
Quarter: 2012Q3

REPORT INFORMATION
  Report Type: 
  Country: None (occurrence: None)
  Receive Date: 20120726
  Receipt Date: 20120718
  Transmission Date: 20120928
  Serious: Yes (Other)
  Sender: FDA-Public Use
  Company Number: US-SANOFI-AVENTIS-2012SA051022

PATIENT
  Age: 64 Year
  Sex: Female

DRUGS (2)
  1. LANTUS SOLOSTAR [Suspect]
     Indication: DIABETES MELLITUS
     Dosage: 30 UNITS IN THE MORNING AND 28 IN THE EVENING
     Route: 058
     Dates: start: 20070101
  2. SOLOSTAR [Suspect]
     Indication: DIABETES MELLITUS
     Dates: start: 20070101

REACTIONS (2)
  - PERICARDIAL EFFUSION [None]
  - WEIGHT INCREASED [None]
